FAERS Safety Report 13655230 (Version 2)
Quarter: 2017Q3

REPORT INFORMATION
  Report Type: Spontaneous
  Country: JP (occurrence: JP)
  Receive Date: 20170615
  Receipt Date: 20170804
  Transmission Date: 20171127
  Serious: Yes (Hospitalization, Other)
  Sender: FDA-Public Use
  Company Number: JP-009507513-1706JPN000964J

PATIENT
  Age: 86 Year
  Sex: Female

DRUGS (6)
  1. ETIZOLAM [Concomitant]
     Active Substance: ETIZOLAM
     Dosage: UNK
     Route: 048
  2. WYPAX [Concomitant]
     Active Substance: LORAZEPAM
     Dosage: UNK
     Route: 048
  3. TRYPTANOL [Concomitant]
     Active Substance: AMITRIPTYLINE
     Dosage: UNK
     Route: 065
  4. MYSLEE [Concomitant]
     Active Substance: ZOLPIDEM TARTRATE
     Indication: INSOMNIA
     Dosage: 2.5 MG, UNK
     Route: 048
  5. LUVOX [Concomitant]
     Active Substance: FLUVOXAMINE MALEATE
     Dosage: UNK
     Route: 048
  6. BELSOMRA [Suspect]
     Active Substance: SUVOREXANT
     Indication: INSOMNIA
     Dosage: 15 MG, QD
     Route: 048
     Dates: start: 20170405

REACTIONS (1)
  - Femoral neck fracture [Unknown]
